FAERS Safety Report 24183164 (Version 2)
Quarter: 2024Q3

REPORT INFORMATION
  Report Type: Spontaneous
  Country: US (occurrence: US)
  Receive Date: 20240807
  Receipt Date: 20240912
  Transmission Date: 20241016
  Serious: No
  Sender: HETERO
  Company Number: US-HETERO-HET2024US02527

PATIENT
  Sex: Female
  Weight: 167.6 kg

DRUGS (3)
  1. IRBESARTAN [Suspect]
     Active Substance: IRBESARTAN
     Indication: Hypertension
     Dosage: 300 MILLIGRAM
     Route: 065
  2. IRBESARTAN [Suspect]
     Active Substance: IRBESARTAN
     Dosage: 150 MILLIGRAM
     Route: 065
  3. IRBESARTAN [Suspect]
     Active Substance: IRBESARTAN
     Dosage: 75 MILLIGRAM
     Route: 048

REACTIONS (5)
  - Blood pressure increased [Unknown]
  - Tendonitis [Unknown]
  - Chest pain [Unknown]
  - Gait inability [Unknown]
  - Drug ineffective [Unknown]
